FAERS Safety Report 6342272-2 (Version None)
Quarter: 2009Q3

REPORT INFORMATION
  Report Type: 
  Country: None (occurrence: None)
  Receive Date: 20090907
  Receipt Date: 20090827
  Transmission Date: 20100115
  Serious: Yes (Hospitalization)
  Sender: FDA-Public Use
  Company Number: US-BIOGENIDEC-2009BI027206

PATIENT
  Age: 46 Year
  Sex: Female
  Weight: 119 kg

DRUGS (1)
  1. AVONEX [Suspect]
     Indication: MULTIPLE SCLEROSIS
     Route: 030
     Dates: start: 20080501

REACTIONS (8)
  - DIZZINESS [None]
  - DYSPNOEA [None]
  - EYE ROLLING [None]
  - FEELING HOT [None]
  - MUSCULOSKELETAL STIFFNESS [None]
  - PULMONARY THROMBOSIS [None]
  - PYREXIA [None]
  - WEIGHT INCREASED [None]
